FAERS Safety Report 23831450 (Version 1)
Quarter: 2024Q2

REPORT INFORMATION
  Report Type: Spontaneous
  Country: US (occurrence: US)
  Receive Date: 20240508
  Receipt Date: 20240508
  Transmission Date: 20240715
  Serious: Yes (Other)
  Sender: FDA-Public Use
  Company Number: US-BRISTOL-MYERS SQUIBB COMPANY-2024-068964

PATIENT
  Age: 85 Year
  Sex: Male

DRUGS (1)
  1. LENALIDOMIDE [Suspect]
     Active Substance: LENALIDOMIDE
     Indication: Myelodysplastic syndrome
     Dosage: TAKE 1 CAPSULE BY MOUTH DAILY FOR 7 DAYS THEN 7 DAYS OFF
     Route: 048
     Dates: start: 20240421

REACTIONS (4)
  - Non-Hodgkin^s lymphoma [Unknown]
  - Constipation [Recovering/Resolving]
  - Bladder disorder [Unknown]
  - Off label use [Unknown]
